FAERS Safety Report 8973653 (Version 1)
Quarter: 2012Q4

REPORT INFORMATION
  Report Type: 
  Country: US (occurrence: US)
  Receive Date: 20121218
  Receipt Date: 20121218
  Transmission Date: 20130627
  Serious: Yes (Other)
  Sender: FDA-Public Use
  Company Number: CHPA2012US001664

PATIENT
  Age: 60 Year
  Sex: Male

DRUGS (1)
  1. EXCEDRIN EXTRA STRENGTH [Suspect]
     Indication: HEADACHE
     Dosage: 2 DF, PRN
     Route: 048
     Dates: start: 201109, end: 20120117

REACTIONS (4)
  - Hepatic steatosis [Not Recovered/Not Resolved]
  - Chronic sinusitis [Recovered/Resolved]
  - Abdominal pain lower [Not Recovered/Not Resolved]
  - Tinnitus [Not Recovered/Not Resolved]
